FAERS Safety Report 7068730-3 (Version None)
Quarter: 2010Q4

REPORT INFORMATION
  Report Type: 
  Country: None (occurrence: None)
  Receive Date: 20101028
  Receipt Date: 20101025
  Transmission Date: 20110411
  Serious: Yes (Other)
  Sender: FDA-Public Use
  Company Number: CN-PFIZER INC-2010131576

PATIENT
  Age: 60 Year
  Sex: Male

DRUGS (4)
  1. ZYVOX [Suspect]
     Indication: PYREXIA
     Dosage: 600 MG, 2X/DAY
     Route: 041
     Dates: start: 20101009, end: 20101012
  2. CLARITHROMYCIN [Concomitant]
  3. MOXIFLOXACIN [Concomitant]
  4. CEPHALOSPORIN C [Concomitant]

REACTIONS (5)
  - GASTROINTESTINAL DISORDER [None]
  - OLIGURIA [None]
  - PROTEIN URINE PRESENT [None]
  - PURPURA [None]
  - RASH [None]
